FAERS Safety Report 9719161 (Version 1)
Quarter: 2013Q4

REPORT INFORMATION
  Report Type: Report from Study
  Country: KR (occurrence: KR)
  Receive Date: 20131127
  Receipt Date: 20131127
  Transmission Date: 20140711
  Serious: No
  Sender: FDA-Public Use
  Company Number: PHHY2013KR137069

PATIENT
  Sex: Male

DRUGS (1)
  1. TASIGNA [Suspect]
     Indication: CHRONIC MYELOID LEUKAEMIA
     Dosage: 600 MG/DAILY
     Route: 048
     Dates: start: 20121004

REACTIONS (3)
  - Incorrect drug administration duration [Unknown]
  - Dry skin [Unknown]
  - Skin wrinkling [Unknown]
